FAERS Safety Report 9528607 (Version 1)
Quarter: 2013Q2

REPORT INFORMATION
  Report Type: Spontaneous
  Country: US (occurrence: None)
  Receive Date: 20130402
  Receipt Date: 20130402
  Transmission Date: 20140414
  Serious: Yes (Other)
  Sender: FDA-Public Use
  Company Number: RB-47742-2012

PATIENT
  Age: 57 Year
  Sex: Male

DRUGS (4)
  1. SUBOXONE [Suspect]
     Indication: DRUG DEPENDENCE
     Dosage: (SUBOXONE FILM; 2 MG INITIAL DOSE SUBLINGUAL)
     Route: 060
     Dates: start: 20121207, end: 20121205
  2. METHADONE [Suspect]
     Indication: DRUG DEPENDENCE
     Route: 048
  3. NORVASC [Concomitant]
  4. LASIX [Concomitant]

REACTIONS (5)
  - Hallucination [None]
  - Off label use [None]
  - Drug withdrawal syndrome [None]
  - Psychomotor hyperactivity [None]
  - Wrong technique in drug usage process [None]
